FAERS Safety Report 18578472 (Version 5)
Quarter: 2021Q3

REPORT INFORMATION
  Report Type: Report from Study
  Country: US (occurrence: US)
  Receive Date: 20201204
  Receipt Date: 20210720
  Transmission Date: 20211014
  Serious: No
  Sender: FDA-Public Use
  Company Number: NVSC2020US322966

PATIENT
  Sex: Male

DRUGS (1)
  1. KESIMPTA [Suspect]
     Active Substance: OFATUMUMAB
     Indication: RELAPSING MULTIPLE SCLEROSIS
     Dosage: 20 MG
     Route: 065
     Dates: start: 20201201

REACTIONS (10)
  - Headache [Unknown]
  - Balance disorder [Unknown]
  - Injection site pain [Unknown]
  - Blood pressure increased [Unknown]
  - Back pain [Unknown]
  - Intentional product use issue [Unknown]
  - Neck pain [Unknown]
  - Pain in extremity [Unknown]
  - Hypoaesthesia [Unknown]
  - Dyspnoea [Unknown]
